FAERS Safety Report 6008527-6 (Version None)
Quarter: 2008Q4

REPORT INFORMATION
  Report Type: 
  Country: None (occurrence: None)
  Receive Date: 20081217
  Receipt Date: 20081215
  Transmission Date: 20090506
  Serious: Yes (Other)
  Sender: FDA-Public Use
  Company Number: US-ASTRAZENECA-2008UW28021

PATIENT
  Age: 69 Year
  Sex: Female
  Weight: 90.7 kg

DRUGS (7)
  1. CRESTOR [Suspect]
     Indication: BLOOD CHOLESTEROL
     Dosage: 10 MG
     Route: 048
  2. EXFORGE [Concomitant]
     Dosage: 10/160
  3. JANUVIA [Concomitant]
     Dosage: 100 MG
  4. LEVOXYL [Concomitant]
     Dosage: 100 UG
  5. PLAVIX [Concomitant]
     Dosage: 75 MG
  6. HYDROCHLOROTHIAZIDE [Concomitant]
     Dosage: 25 MG
  7. CELEXA [Concomitant]
     Dosage: 20 MG

REACTIONS (2)
  - LOWER EXTREMITY MASS [None]
  - WEIGHT DECREASED [None]
